FAERS Safety Report 5269889-0 (Version None)
Quarter: 2007Q1

REPORT INFORMATION
  Report Type: 
  Country: None (occurrence: None)
  Receive Date: 20070320
  Receipt Date: 20070315
  Transmission Date: 20070707
  Serious: Yes (Other)
  Sender: FDA-Public Use
  Company Number: ES-GLAXOSMITHKLINE-B0462276A

PATIENT
  Age: 15 Month
  Sex: Male

DRUGS (2)
  1. CEFUROXIME [Suspect]
     Route: 065
     Dates: start: 20070201, end: 20070201
  2. IBUPROFEN [Concomitant]
     Route: 065
     Dates: start: 20070201, end: 20070201

REACTIONS (2)
  - PLATELETCRIT DECREASED [None]
  - THROMBOCYTOPENIA [None]
